FAERS Safety Report 21045025 (Version 1)
Quarter: 2022Q3

REPORT INFORMATION
  Report Type: Spontaneous
  Country: BE (occurrence: BE)
  Receive Date: 20220705
  Receipt Date: 20220705
  Transmission Date: 20221027
  Serious: Yes (Death, Hospitalization)
  Sender: FDA-Public Use
  Company Number: BE-002147023-NVSC2022BE145673

PATIENT

DRUGS (1)
  1. RUXOLITINIB [Suspect]
     Active Substance: RUXOLITINIB
     Indication: Myelofibrosis
     Dosage: 15 MG, BID
     Route: 065
     Dates: start: 20170311

REACTIONS (4)
  - Acute kidney injury [Unknown]
  - Escherichia sepsis [Unknown]
  - Death [Fatal]
  - Ischaemic hepatitis [Unknown]

NARRATIVE: CASE EVENT DATE: 20220606
